FAERS Safety Report 8794412 (Version 1)
Quarter: 2012Q4

REPORT INFORMATION
  Report Type: 
  Country: US (occurrence: US)
  Receive Date: 20120917
  Receipt Date: 20120917
  Transmission Date: 20130627
  Serious: Yes (Death)
  Sender: FDA-Public Use
  Company Number: CHPA2012US019587

PATIENT
  Age: 85 Year
  Sex: Female

DRUGS (1)
  1. BUCKLEY^S COUGH MIXTURE [Suspect]
     Dosage: UnK, PRN
     Route: 048

REACTIONS (1)
  - Death [Fatal]
